FAERS Safety Report 8568678 (Version 3)
Quarter: 2013Q3

REPORT INFORMATION
  Report Type: Report from Study
  Country: JP (occurrence: JP)
  Receive Date: 20120518
  Receipt Date: 20130715
  Transmission Date: 20140515
  Serious: Yes (Other)
  Sender: FDA-Public Use
  Company Number: JP-VERTEX PHARMACEUTICALS INC.-AE-2012-003965

PATIENT
  Age: 67 Year
  Sex: Male

DRUGS (16)
  1. VX-950 (TELAPREVIR) [Suspect]
     Indication: CHRONIC HEPATITIS C
     Dosage: 2250 MG, QD
     Route: 048
     Dates: start: 20120120, end: 20120216
  2. VX-950 (TELAPREVIR) [Suspect]
     Dosage: 1500 MG, QD
     Route: 048
     Dates: start: 20120217, end: 20120223
  3. RIBAVIRIN [Suspect]
     Indication: CHRONIC HEPATITIS C
     Dosage: 800 MG, QD
     Route: 048
     Dates: start: 20120120, end: 20120202
  4. RIBAVIRIN [Suspect]
     Dosage: 600 MG, QD
     Route: 048
     Dates: start: 20120203, end: 20120208
  5. RIBAVIRIN [Suspect]
     Dosage: 200 MG, QD
     Route: 048
     Dates: start: 20120209, end: 20120224
  6. PEGINTERFERON ALFA-2B [Concomitant]
     Dosage: 1.5 ?G/KG, QW
     Route: 058
     Dates: start: 20120120, end: 20120224
  7. RENIVACE [Concomitant]
     Dosage: 5 MG, QD
     Route: 048
  8. AMLODIN [Concomitant]
     Dosage: 5 MG, QD
     Route: 048
  9. METGLUCO [Concomitant]
     Dosage: 750 MG, QD
     Route: 048
  10. MEVALOTIN [Concomitant]
     Dosage: 10 MG, QD
     Route: 048
  11. JANUVIA [Concomitant]
     Dosage: 50 MG, QD
     Route: 048
  12. PREDONINE [Concomitant]
     Dosage: 30 MG, QD
     Route: 048
     Dates: start: 20120125, end: 20120127
  13. PREDONINE [Concomitant]
     Dosage: 20 MG, QD
     Route: 048
     Dates: start: 20120128, end: 20120131
  14. PREDONINE [Concomitant]
     Dosage: 10 MG, QD
     Route: 048
     Dates: start: 20120201, end: 20120203
  15. DIACORT [Concomitant]
     Dosage: Q.S/ DAY
     Route: 061
     Dates: start: 20120123, end: 20120203
  16. AMLODIN OD [Concomitant]
     Dosage: 5 MG, QD
     Route: 048

REACTIONS (1)
  - Anaemia [Recovered/Resolved]
